FAERS Safety Report 11473965 (Version 1)
Quarter: 2015Q3

REPORT INFORMATION
  Report Type: Spontaneous
  Country: US (occurrence: None)
  Receive Date: 20150908
  Receipt Date: 20150908
  Transmission Date: 20151125
  Serious: No
  Sender: FDA-Public Use
  Company Number: None

PATIENT
  Age: 70 Year
  Sex: Male
  Weight: 58.97 kg

DRUGS (4)
  1. SCHIFF MELATONIN [Concomitant]
  2. TAMSULLOSIN [Concomitant]
  3. TERAZOSIN [Concomitant]
     Active Substance: TERAZOSIN\TERAZOSIN HYDROCHLORIDE
  4. SEROQUEL XR [Suspect]
     Active Substance: QUETIAPINE FUMARATE
     Indication: BIPOLAR I DISORDER
     Route: 048
     Dates: start: 20140930, end: 20150907

REACTIONS (3)
  - Restless legs syndrome [None]
  - Poor quality sleep [None]
  - Condition aggravated [None]

NARRATIVE: CASE EVENT DATE: 20150906
